FAERS Safety Report 8956440 (Version 1)
Quarter: 2012Q4

REPORT INFORMATION
  Report Type: 
  Country: CN (occurrence: CN)
  Receive Date: 20121210
  Receipt Date: 20121210
  Transmission Date: 20130627
  Serious: Yes (Hospitalization)
  Sender: FDA-Public Use
  Company Number: CN-SANOFI-AVENTIS-2012SA088201

PATIENT
  Age: 52 Year
  Sex: Female
  Weight: 58.5 kg

DRUGS (1)
  1. GLIMEPIRIDE [Suspect]
     Indication: DIABETES MELLITUS
     Dosage: duration: unknown
     Route: 048
     Dates: start: 2012, end: 20120922

REACTIONS (4)
  - Erythema multiforme [Recovered/Resolved]
  - Rash [Recovered/Resolved]
  - Hypersensitivity [Recovered/Resolved]
  - Drug eruption [Recovered/Resolved]
